FAERS Safety Report 22309790 (Version 1)
Quarter: 2023Q2

REPORT INFORMATION
  Report Type: Spontaneous
  Country: US (occurrence: US)
  Receive Date: 20230511
  Receipt Date: 20230511
  Transmission Date: 20230722
  Serious: Yes (Life-Threatening, Hospitalization)
  Sender: FDA-Public Use
  Company Number: US-GLAND PHARMA LIMITED-2023US001687

PATIENT
  Age: 49 Year
  Sex: Male

DRUGS (2)
  1. AMIODARONE HYDROCHLORIDE [Suspect]
     Active Substance: AMIODARONE HYDROCHLORIDE
     Indication: Cardiac failure
     Dosage: UNK
     Route: 065
  2. AMIODARONE HYDROCHLORIDE [Suspect]
     Active Substance: AMIODARONE HYDROCHLORIDE
     Indication: Atrial fibrillation

REACTIONS (4)
  - Upper gastrointestinal haemorrhage [Unknown]
  - Mental status changes [Unknown]
  - Drug ineffective [Unknown]
  - Off label use [Unknown]
